FAERS Safety Report 9994764 (Version 2)
Quarter: 2014Q2

REPORT INFORMATION
  Report Type: Spontaneous
  Country: FR (occurrence: FR)
  Receive Date: 20140311
  Receipt Date: 20140414
  Transmission Date: 20141212
  Serious: Yes (Other)
  Sender: FDA-Public Use
  Company Number: FR-UCBSA-113784

PATIENT
  Age: 60 Year
  Sex: Female
  Weight: 52 kg

DRUGS (5)
  1. CIMZIA [Suspect]
     Indication: RHEUMATOID ARTHRITIS
     Route: 058
     Dates: start: 20120307
  2. CIMZIA [Suspect]
     Indication: RHEUMATOID ARTHRITIS
     Dosage: MAINTENANCE DOSE
     Dates: end: 201312
  3. ENBREL [Concomitant]
     Indication: RHEUMATOID ARTHRITIS
     Dosage: RECEIVED FOR AROUND 15 DAYS; 1 OR 2 INJECTIONS
     Route: 058
     Dates: start: 20131230, end: 201402
  4. METHOTREXATE [Concomitant]
     Dates: start: 201001, end: 201102
  5. METHOTREXATE [Concomitant]
     Dates: start: 201102

REACTIONS (2)
  - Invasive ductal breast carcinoma [Recovering/Resolving]
  - Drug ineffective [Recovered/Resolved]
